FAERS Safety Report 5801793-9 (Version None)
Quarter: 2008Q3

REPORT INFORMATION
  Report Type: 
  Country: None (occurrence: None)
  Receive Date: 20080702
  Receipt Date: 20080702
  Transmission Date: 20090109
  Serious: No
  Sender: FDA-Public Use
  Company Number: None

PATIENT
  Age: 58 Year
  Sex: Male

DRUGS (2)
  1. CITALOPRAM HYDROBROMIDE [Suspect]
     Indication: DEPRESSION
     Dosage: 20 MG EVERY DAY PO
     Route: 048
     Dates: start: 20080319, end: 20080324
  2. VARENICLINE [Suspect]
     Indication: TOBACCO ABUSE
     Dosage: 1 MG BID PO
     Route: 048

REACTIONS (1)
  - SUICIDAL IDEATION [None]
